FAERS Safety Report 5769984-3 (Version None)
Quarter: 2008Q2

REPORT INFORMATION
  Report Type: 
  Country: None (occurrence: None)
  Receive Date: 20080613
  Receipt Date: 20080415
  Transmission Date: 20081010
  Serious: No
  Sender: FDA-Public Use
  Company Number: US-ABBOTT-08P-163-0447832-00

PATIENT
  Sex: Female
  Weight: 58.112 kg

DRUGS (3)
  1. HUMIRA [Suspect]
     Indication: PSORIASIS
     Route: 058
     Dates: start: 20080326
  2. HUMIRA [Suspect]
     Indication: PSORIATIC ARTHROPATHY
  3. ESTROPIPATE [Concomitant]
     Indication: BLOOD OESTROGEN
     Dosage: 1/2 TABLET EVERY DAY
     Route: 048
     Dates: start: 19780101

REACTIONS (3)
  - RASH [None]
  - RASH PAPULAR [None]
  - RASH PRURITIC [None]
